FAERS Safety Report 7332695-7 (Version None)
Quarter: 2011Q1

REPORT INFORMATION
  Report Type: 
  Country: None (occurrence: None)
  Receive Date: 20110304
  Receipt Date: 20110221
  Transmission Date: 20110831
  Serious: Yes (Other)
  Sender: FDA-Public Use
  Company Number: PHHY2011US15070

PATIENT

DRUGS (10)
  1. NIFEDIPINE [Concomitant]
     Dosage: 120 MG, BID
  2. TACROLIMUS [Interacting]
     Dosage: 5 MG, BID
  3. NICARDIPINE HYDROCHLORIDE [Interacting]
     Dosage: 6.6 MG/H, UNK
     Route: 042
  4. TACROLIMUS [Interacting]
     Dosage: 4 MG, BID
  5. PREDNISONE [Concomitant]
  6. NICARDIPINE HYDROCHLORIDE [Concomitant]
     Dosage: 20 MG, UNK
     Route: 048
  7. TACROLIMUS [Interacting]
     Dosage: 3 MG, BID
  8. MYCOPHENOLATE MOFETIL [Concomitant]
  9. TACROLIMUS [Suspect]
     Dosage: 3 MG, BID
  10. TACROLIMUS [Interacting]
     Dosage: 2 MG, BID

REACTIONS (9)
  - HYPERTENSION [None]
  - PROTEINURIA [None]
  - IMMUNOSUPPRESSANT DRUG LEVEL DECREASED [None]
  - BLOOD CREATININE INCREASED [None]
  - BLOOD PRESSURE INADEQUATELY CONTROLLED [None]
  - TRANSPLANT REJECTION [None]
  - DRUG LEVEL DECREASED [None]
  - DRUG INTERACTION [None]
  - KIDNEY TRANSPLANT REJECTION [None]
